FAERS Safety Report 16981859 (Version 4)
Quarter: 2020Q1

REPORT INFORMATION
  Report Type: Spontaneous
  Country: ES (occurrence: ES)
  Receive Date: 20191101
  Receipt Date: 20200122
  Transmission Date: 20200409
  Serious: Yes (Other)
  Sender: FDA-Public Use
  Company Number: ES-TEVA-2019-ES-1130306

PATIENT
  Age: 46 Year
  Sex: Male

DRUGS (1)
  1. IBUPROFENO (1769A) [Suspect]
     Active Substance: IBUPROFEN
     Dates: start: 20190906, end: 20190906

REACTIONS (2)
  - Respiratory distress [Recovering/Resolving]
  - Nasal obstruction [Recovering/Resolving]

NARRATIVE: CASE EVENT DATE: 20190906
